FAERS Safety Report 8978002 (Version 2)
Quarter: 2013Q3

REPORT INFORMATION
  Report Type: Report from Study
  Country: JP (occurrence: JP)
  Receive Date: 20121220
  Receipt Date: 20130828
  Transmission Date: 20140515
  Serious: Yes (Other)
  Sender: FDA-Public Use
  Company Number: JP-VERTEX PHARMACEUTICALS INC.-2012-026427

PATIENT
  Age: 37 Year
  Sex: Male

DRUGS (7)
  1. VX-950 (TELAPREVIR) [Suspect]
     Indication: CHRONIC HEPATITIS C
     Dosage: 1500 MG, QD
     Route: 048
     Dates: start: 20120905, end: 20121127
  2. RIBAVIRIN [Concomitant]
     Indication: CHRONIC HEPATITIS C
     Dosage: 600 MG, QD
     Route: 048
     Dates: start: 20120905, end: 20121023
  3. RIBAVIRIN [Concomitant]
     Dosage: 400 MG, QD
     Route: 048
     Dates: start: 20121024
  4. PEGINTERFERON ALFA-2B [Concomitant]
     Indication: CHRONIC HEPATITIS C
     Dosage: 1.5 ?G/KG, QW
     Route: 058
     Dates: start: 20120905, end: 20120911
  5. PEGINTERFERON ALFA-2B [Concomitant]
     Dosage: 0.75 ?G/KG, QW
     Route: 058
     Dates: start: 20120912, end: 20120918
  6. PEGINTERFERON ALFA-2B [Concomitant]
     Dosage: 0.94 ?G/KG, QW
     Route: 058
     Dates: start: 20120919
  7. KERATINAMIN [Concomitant]
     Dosage: UNK, PRN
     Route: 061
     Dates: start: 20121121

REACTIONS (1)
  - White blood cell count decreased [Recovered/Resolved]
